FAERS Safety Report 10066392 (Version 1)
Quarter: 2014Q2

REPORT INFORMATION
  Report Type: Spontaneous
  Country: GB (occurrence: GB)
  Receive Date: 20140408
  Receipt Date: 20140408
  Transmission Date: 20141212
  Serious: Yes (Hospitalization, Other)
  Sender: FDA-Public Use
  Company Number: GB-ABBVIE-14K-167-1220740-00

PATIENT
  Age: 48 Year
  Sex: Male

DRUGS (4)
  1. NORVIR [Suspect]
     Indication: PRODUCT USED FOR UNKNOWN INDICATION
  2. PREZISTA [Suspect]
     Indication: PRODUCT USED FOR UNKNOWN INDICATION
  3. ACICLOVIR [Suspect]
     Indication: PRODUCT USED FOR UNKNOWN INDICATION
  4. STEROIDS [Suspect]
     Indication: PRODUCT USED FOR UNKNOWN INDICATION

REACTIONS (2)
  - Asthma [Unknown]
  - Hypersensitivity [Unknown]
